FAERS Safety Report 8272982-1 (Version None)
Quarter: 2012Q2

REPORT INFORMATION
  Report Type: 
  Country: None (occurrence: None)
  Receive Date: 20120411
  Receipt Date: 20120330
  Transmission Date: 20120825
  Serious: Yes (Other)
  Sender: FDA-Public Use
  Company Number: US-JNJFOC-20120401275

PATIENT
  Sex: Female
  Weight: 72.8 kg

DRUGS (17)
  1. CEPHALEXIN [Concomitant]
  2. OLOPATADINE [Concomitant]
  3. PRILOCAINE HYDROCHLORIDE [Concomitant]
  4. FLUOCINOLONE ACETONIDE [Concomitant]
  5. FEXOFENADINE [Concomitant]
  6. MULTI-VITAMINS [Concomitant]
  7. DESOXIMETASONE [Concomitant]
  8. MUPIROCIN [Concomitant]
  9. CARBAMIDE PEROXIDE [Concomitant]
  10. ALBUTEROL [Concomitant]
  11. DIPHENHYDRAMINE HCL [Concomitant]
  12. MIRALAX [Concomitant]
  13. LIDOCAINE [Concomitant]
  14. ACETAMINOPHEN [Concomitant]
  15. REMICADE [Suspect]
     Indication: INFLAMMATORY BOWEL DISEASE
     Route: 042
     Dates: start: 20080313, end: 20110915
  16. MESALAMINE [Suspect]
     Indication: INFLAMMATORY BOWEL DISEASE
     Route: 048
  17. HUMIRA [Suspect]
     Indication: INFLAMMATORY BOWEL DISEASE
     Dates: start: 20110930

REACTIONS (1)
  - PSORIASIS [None]
